FAERS Safety Report 6793199-3 (Version None)
Quarter: 2010Q2

REPORT INFORMATION
  Report Type: 
  Country: None (occurrence: None)
  Receive Date: 20100624
  Receipt Date: 20090810
  Transmission Date: 20101027
  Serious: Yes (Death)
  Sender: FDA-Public Use
  Company Number: US-MYLANLABS-2009S1013474

PATIENT
  Age: 57 Year
  Sex: Male
  Weight: 145.15 kg

DRUGS (3)
  1. CLOZAPINE [Suspect]
     Route: 048
  2. HALDOL [Suspect]
  3. NICOTINE [Suspect]
     Dates: end: 20090614

REACTIONS (1)
  - DEATH [None]
